FAERS Safety Report 7043632-7 (Version None)
Quarter: 2010Q4

REPORT INFORMATION
  Report Type: 
  Country: None (occurrence: None)
  Receive Date: 20101013
  Receipt Date: 20101004
  Transmission Date: 20110411
  Serious: Yes (Other)
  Sender: FDA-Public Use
  Company Number: B0678674A

PATIENT
  Age: 64 Year
  Sex: Male

DRUGS (2)
  1. AVAMYS [Suspect]
     Dosage: 110MCG PER DAY
     Route: 065
  2. TELMISARTAN [Concomitant]

REACTIONS (1)
  - ANOSMIA [None]
